FAERS Safety Report 23592216 (Version 2)
Quarter: 2024Q2

REPORT INFORMATION
  Report Type: Spontaneous
  Country: US (occurrence: US)
  Receive Date: 20240304
  Receipt Date: 20240411
  Transmission Date: 20240716
  Serious: No
  Sender: FDA-Public Use
  Company Number: US-JNJFOC-20240283620

PATIENT
  Age: 51 Year
  Sex: Female
  Weight: 67.4 kg

DRUGS (1)
  1. REMICADE [Suspect]
     Active Substance: INFLIXIMAB
     Indication: Product used for unknown indication
     Route: 041
     Dates: start: 20240228

REACTIONS (2)
  - Underdose [Unknown]
  - Product container issue [Unknown]

NARRATIVE: CASE EVENT DATE: 20240228
